FAERS Safety Report 13081350 (Version 2)
Quarter: 2017Q1

REPORT INFORMATION
  Report Type: Report from Study
  Country: US (occurrence: US)
  Receive Date: 20170103
  Receipt Date: 20170126
  Transmission Date: 20170428
  Serious: Yes (Other)
  Sender: FDA-Public Use
  Company Number: US-ARIAD-2016US007492

PATIENT
  Age: 28 Year
  Sex: Female

DRUGS (2)
  1. ICLUSIG [Suspect]
     Active Substance: PONATINIB
     Dosage: 30 MG, QD
     Route: 048
  2. ICLUSIG [Suspect]
     Active Substance: PONATINIB
     Indication: CHRONIC MYELOID LEUKAEMIA
     Dosage: 45 MG, QD
     Route: 048
     Dates: start: 20150908

REACTIONS (8)
  - Hepatomegaly [Unknown]
  - Menstrual disorder [Unknown]
  - Cholecystitis [Unknown]
  - Cholecystitis acute [Recovered/Resolved]
  - Stem cell transplant [Unknown]
  - Mental disorder [Recovered/Resolved]
  - Liver function test increased [Unknown]
  - Venoocclusive disease [Unknown]

NARRATIVE: CASE EVENT DATE: 20151023
